FAERS Safety Report 20634809 (Version 1)
Quarter: 2022Q1

REPORT INFORMATION
  Report Type: Spontaneous
  Country: US (occurrence: US)
  Receive Date: 20220325
  Receipt Date: 20220325
  Transmission Date: 20220423
  Serious: Yes (Disabling)
  Sender: FDA-Public Use
  Company Number: US-SANOFI-00893597

PATIENT

DRUGS (1)
  1. ASPERCREME NOS [Suspect]
     Active Substance: MENTHOL\TROLAMINE SALICYLATE
     Indication: Arthritis
     Dosage: UNK

REACTIONS (3)
  - Walking aid user [Unknown]
  - Limb injury [Unknown]
  - Packaging design issue [Unknown]
